FAERS Safety Report 7375392-4 (Version None)
Quarter: 2011Q1

REPORT INFORMATION
  Report Type: 
  Country: None (occurrence: None)
  Receive Date: 20110325
  Receipt Date: 20110315
  Transmission Date: 20110831
  Serious: Yes (Other)
  Sender: FDA-Public Use
  Company Number: BR-PFIZER INC-BR-WYE-H15150010

PATIENT
  Age: 44 Year
  Sex: Female
  Weight: 71.9 kg

DRUGS (4)
  1. PRISTIQ [Suspect]
     Indication: ANXIETY
     Dosage: 50 MG, 1X/DAY
     Route: 048
     Dates: start: 20100209
  2. EUTHYROX [Concomitant]
  3. PRISTIQ [Suspect]
     Indication: DEPRESSION
  4. RABEPRAZOLE [Concomitant]

REACTIONS (5)
  - SWELLING [None]
  - BODY MASS INDEX INCREASED [None]
  - WEIGHT LOSS POOR [None]
  - FLUID RETENTION [None]
  - WEIGHT INCREASED [None]
